FAERS Safety Report 17025729 (Version 1)
Quarter: 2019Q4

REPORT INFORMATION
  Report Type: Spontaneous
  Country: GR (occurrence: GR)
  Receive Date: 20191113
  Receipt Date: 20191113
  Transmission Date: 20200122
  Serious: Yes (Other)
  Sender: FDA-Public Use
  Company Number: GR-ASTRAZENECA-2019SF58180

PATIENT
  Age: 62 Year
  Sex: Female
  Weight: 75 kg

DRUGS (1)
  1. XIGDUO XR [Suspect]
     Active Substance: DAPAGLIFLOZIN PROPANEDIOL\METFORMIN HYDROCHLORIDE
     Indication: DIABETES MELLITUS
     Route: 048
     Dates: start: 20170901, end: 20190901

REACTIONS (1)
  - Skin odour abnormal [Recovered/Resolved]

NARRATIVE: CASE EVENT DATE: 20180601
